FAERS Safety Report 19216253 (Version 1)
Quarter: 2021Q2

REPORT INFORMATION
  Report Type: Spontaneous
  Country: US (occurrence: US)
  Receive Date: 20210504
  Receipt Date: 20210504
  Transmission Date: 20210717
  Serious: Yes (Hospitalization)
  Sender: FDA-Public Use
  Company Number: None

PATIENT
  Sex: Male

DRUGS (9)
  1. NAPROXEN 500MG [Concomitant]
     Active Substance: NAPROXEN
  2. FENOFIBRATE 48MG [Concomitant]
     Active Substance: FENOFIBRATE
  3. OLM MED/HCTZ 20?12.5 [Concomitant]
  4. METFORMIN 500MG [Concomitant]
     Active Substance: METFORMIN HYDROCHLORIDE
  5. HYDROXYCHLOR TAB 200MG [Concomitant]
     Active Substance: HYDROXYCHLOROQUINE
  6. TIZANDINE 2MG [Concomitant]
  7. XELJANZ XR [Suspect]
     Active Substance: TOFACITINIB CITRATE
     Indication: RHEUMATOID ARTHRITIS
     Route: 048
     Dates: start: 20171124
  8. NIFEDIPINE 30MG [Concomitant]
     Active Substance: NIFEDIPINE
  9. ATORVASTATIN [Concomitant]
     Active Substance: ATORVASTATIN

REACTIONS (2)
  - Hip surgery [None]
  - Therapy interrupted [None]
